FAERS Safety Report 8953590 (Version 2)
Quarter: 2012Q4

REPORT INFORMATION
  Report Type: 
  Country: IT (occurrence: IT)
  Receive Date: 20121206
  Receipt Date: 20121213
  Transmission Date: 20130627
  Serious: Yes (Hospitalization)
  Sender: FDA-Public Use
  Company Number: IT-ASTRAZENECA-2012SE90542

PATIENT
  Age: 57 Year
  Sex: Male

DRUGS (9)
  1. BRILIQUE [Suspect]
     Route: 048
     Dates: start: 20121113, end: 20121125
  2. CLEXANE [Suspect]
     Dosage: 8000 IU AXA/0.8 ml, 16000 IU DAILY
     Route: 058
     Dates: start: 20121113, end: 20121125
  3. PANTORC [Concomitant]
     Route: 048
     Dates: start: 20121113
  4. KCL RETARD [Concomitant]
     Route: 048
  5. AMIODAR [Concomitant]
     Route: 048
  6. TORVAST [Concomitant]
     Route: 048
  7. ESAPENT [Concomitant]
     Route: 048
  8. RAMIPRIL ACTAVIS [Concomitant]
     Route: 048
  9. CONGESCOR [Concomitant]
     Route: 048

REACTIONS (1)
  - Thalamus haemorrhage [Recovered/Resolved]
